FAERS Safety Report 7425614-6 (Version None)
Quarter: 2011Q2

REPORT INFORMATION
  Report Type: 
  Country: None (occurrence: None)
  Receive Date: 20110420
  Receipt Date: 20110415
  Transmission Date: 20111010
  Serious: Yes (Death, Other)
  Sender: FDA-Public Use
  Company Number: MY-PFIZER INC-2011060919

PATIENT

DRUGS (2)
  1. ZYVOX [Suspect]
     Dosage: UNK
     Route: 042
     Dates: start: 20110321
  2. VANCOMYCIN [Suspect]

REACTIONS (2)
  - DEATH [None]
  - NEPHROPATHY TOXIC [None]
